FAERS Safety Report 21548753 (Version 1)
Quarter: 2022Q4

REPORT INFORMATION
  Report Type: Spontaneous
  Country: US (occurrence: US)
  Receive Date: 20221103
  Receipt Date: 20221103
  Transmission Date: 20230112
  Serious: Yes (Life-Threatening, Hospitalization)
  Sender: FDA-Public Use
  Company Number: US-MYLANLABS-2022M1119997

PATIENT
  Age: 66 Year
  Sex: Male

DRUGS (2)
  1. LORAZEPAM [Suspect]
     Active Substance: LORAZEPAM
     Indication: Seizure
     Dosage: UNK (SEVERAL MILLIGRAMS)
     Route: 042
  2. FOSPHENYTOIN [Suspect]
     Active Substance: FOSPHENYTOIN
     Indication: Seizure
     Dosage: 1000 MILLIGRAM
     Route: 042

REACTIONS (1)
  - Drug ineffective [Unknown]
